FAERS Safety Report 8992374 (Version 1)
Quarter: 2012Q4

REPORT INFORMATION
  Report Type: 
  Country: AU (occurrence: AU)
  Receive Date: 20121231
  Receipt Date: 20121231
  Transmission Date: 20130627
  Serious: Yes (Other)
  Sender: FDA-Public Use
  Company Number: PHHY2012AU121233

PATIENT
  Age: 49 Year
  Sex: Female

DRUGS (1)
  1. MINOCYCLINE [Suspect]
     Indication: ROSACEA

REACTIONS (12)
  - Acute febrile neutrophilic dermatosis [Recovered/Resolved]
  - Rash erythematous [Recovered/Resolved]
  - Skin mass [Recovered/Resolved]
  - Skin plaque [Recovered/Resolved]
  - Rash [Recovered/Resolved]
  - Skin lesion [Recovered/Resolved]
  - Pain [Recovered/Resolved]
  - Skin ulcer [Recovered/Resolved]
  - Hepatic function abnormal [Recovered/Resolved]
  - Acanthosis [Recovered/Resolved]
  - Skin oedema [Recovered/Resolved]
  - Excoriation [Recovered/Resolved]
